FAERS Safety Report 6310820-4 (Version None)
Quarter: 2009Q3

REPORT INFORMATION
  Report Type: 
  Country: None (occurrence: None)
  Receive Date: 20090812
  Receipt Date: 20090729
  Transmission Date: 20100115
  Serious: Yes (Other)
  Sender: FDA-Public Use
  Company Number: 2009IP000056

PATIENT
  Age: 50 Year
  Sex: Female

DRUGS (3)
  1. XIBROM [Suspect]
     Indication: CATARACT
     Dosage: 1 GTT;BID;OPH
     Route: 047
     Dates: start: 20090713, end: 20090720
  2. ZYMAR [Concomitant]
  3. PRED FORTE [Concomitant]

REACTIONS (4)
  - EYE OPERATION [None]
  - POST PROCEDURAL COMPLICATION [None]
  - TRANSPLANT [None]
  - WOUND SECRETION [None]
